FAERS Safety Report 11857164 (Version 1)
Quarter: 2015Q4

REPORT INFORMATION
  Report Type: Spontaneous
  Country: US (occurrence: US)
  Receive Date: 20151221
  Receipt Date: 20151221
  Transmission Date: 20160305
  Serious: No
  Sender: FDA-Public Use
  Company Number: US-PFIZER INC-2015422166

PATIENT
  Age: 76 Year
  Sex: Female

DRUGS (7)
  1. VENLAFAXINE [Concomitant]
     Active Substance: VENLAFAXINE HYDROCHLORIDE
     Indication: NEUROPATHY PERIPHERAL
     Dosage: 75MG OR 100MG
  2. METOPROLOL [Concomitant]
     Active Substance: METOPROLOL
  3. LYRICA [Suspect]
     Active Substance: PREGABALIN
     Dosage: TWO 50MG AND TWO 75MG CAPSULES TWICE A DAY
  4. SIMVASTATIN. [Concomitant]
     Active Substance: SIMVASTATIN
  5. VITAMIN B12 [Concomitant]
     Active Substance: CYANOCOBALAMIN
  6. LISINOPRIL. [Concomitant]
     Active Substance: LISINOPRIL
  7. LYRICA [Suspect]
     Active Substance: PREGABALIN
     Indication: NEUROPATHY PERIPHERAL
     Dosage: 150 MG, 2X/DAY

REACTIONS (5)
  - Pain [Not Recovered/Not Resolved]
  - Drug ineffective [Unknown]
  - Condition aggravated [Not Recovered/Not Resolved]
  - Drug tolerance [Unknown]
  - Memory impairment [Unknown]
